FAERS Safety Report 7642745-6 (Version None)
Quarter: 2011Q3

REPORT INFORMATION
  Report Type: 
  Country: None (occurrence: None)
  Receive Date: 20110728
  Receipt Date: 20110718
  Transmission Date: 20111222
  Serious: Yes (Other)
  Sender: FDA-Public Use
  Company Number: DE-AMGEN-DEUSP2011030348

PATIENT
  Age: 61 Year
  Sex: Female
  Weight: 62 kg

DRUGS (2)
  1. PROLIA [Suspect]
     Indication: OSTEOPOROSIS
     Dosage: 60 MG, UNK
     Route: 058
     Dates: start: 20110205
  2. ERGOCALCIFEROL [Concomitant]
     Dosage: 4000 UNK, UNK
     Route: 048

REACTIONS (2)
  - BONE DENSITY DECREASED [None]
  - LABORATORY TEST ABNORMAL [None]
